FAERS Safety Report 5368684-1 (Version None)
Quarter: 2007Q2

REPORT INFORMATION
  Report Type: 
  Country: None (occurrence: None)
  Receive Date: 20070625
  Receipt Date: 20070319
  Transmission Date: 20071010
  Serious: No
  Sender: FDA-Public Use
  Company Number: US-BRISTOL-MYERS SQUIBB COMPANY-13719232

PATIENT
  Age: 52 Year
  Sex: Male

DRUGS (8)
  1. ORENCIA [Suspect]
     Indication: RHEUMATOID ARTHRITIS
     Route: 042
     Dates: start: 20070305
  2. LIPITOR [Concomitant]
  3. TRICOR [Concomitant]
  4. ZETIA [Concomitant]
  5. OMACOR [Concomitant]
  6. HUMALOG [Concomitant]
  7. LANTUS [Concomitant]
  8. SYNTHROID [Concomitant]

REACTIONS (5)
  - HEADACHE [None]
  - NAUSEA [None]
  - PYREXIA [None]
  - SOMNOLENCE [None]
  - WEIGHT FLUCTUATION [None]
